FAERS Safety Report 5170461-1 (Version None)
Quarter: 2006Q4

REPORT INFORMATION
  Report Type: 
  Country: None (occurrence: None)
  Receive Date: 20061204
  Receipt Date: 20061123
  Transmission Date: 20070319
  Serious: Yes (Death, Other)
  Sender: FDA-Public Use
  Company Number: 2006144626

PATIENT
  Age: 74 Year
  Sex: Male
  Weight: 63 kg

DRUGS (1)
  1. SULPERAZON (SULBACTAM, CEFOPERAZONE) [Suspect]
     Indication: ANTI-INFECTIVE THERAPY
     Dosage: 2 G; 6G (3 IN 1 D), INTRAVENOUS
     Route: 042
     Dates: start: 20061103, end: 20061106

REACTIONS (2)
  - DERMATITIS EXFOLIATIVE [None]
  - MULTI-ORGAN FAILURE [None]
